FAERS Safety Report 9164864 (Version 1)
Quarter: 2013Q1

REPORT INFORMATION
  Report Type: Spontaneous
  Country: US (occurrence: None)
  Receive Date: 20130227
  Receipt Date: 20130227
  Transmission Date: 20140127
  Serious: Yes (Other)
  Sender: FDA-Public Use
  Company Number: TPA2012A09200

PATIENT
  Age: 72 Year
  Sex: Male
  Weight: 111.13 kg

DRUGS (6)
  1. ACTOS [Suspect]
     Dates: start: 2004, end: 200712
  2. METFORMIN [Concomitant]
  3. AVANDIA [Concomitant]
  4. LISPRO [Concomitant]
  5. DIABETA [Concomitant]
  6. LANTUS [Concomitant]

REACTIONS (1)
  - Bladder cancer [None]
